FAERS Safety Report 9565631 (Version 2)
Quarter: 2013Q3

REPORT INFORMATION
  Report Type: Report from Study
  Country: CA (occurrence: CA)
  Receive Date: 20130930
  Receipt Date: 20130930
  Transmission Date: 20140515
  Serious: Yes (Other)
  Sender: FDA-Public Use
  Company Number: CA-BAYER-2013-107691

PATIENT
  Age: 26 Year
  Sex: Female

DRUGS (2)
  1. MIRENA [Suspect]
     Indication: MENORRHAGIA
     Dosage: 20 MCG/24HR, CONT
     Route: 015
     Dates: start: 201109, end: 20130828
  2. MIRENA [Suspect]
     Indication: CONTRACEPTION

REACTIONS (4)
  - Unintentional medical device removal [None]
  - Device dislocation [None]
  - Hypomenorrhoea [None]
  - Cervical dysplasia [None]
